FAERS Safety Report 20729980 (Version 2)
Quarter: 2022Q2

REPORT INFORMATION
  Report Type: Spontaneous
  Country: US (occurrence: US)
  Receive Date: 20220420
  Receipt Date: 20220510
  Transmission Date: 20220721
  Serious: No
  Sender: FDA-Public Use
  Company Number: US-PFIZER INC-202101790615

PATIENT
  Age: 60 Year
  Sex: Female

DRUGS (14)
  1. IBRANCE [Suspect]
     Active Substance: PALBOCICLIB
     Indication: Breast cancer female
     Dosage: 125 MG, CYCLIC (DAILY, 21 DAYS ON, 7 DAYS OFF )
     Route: 048
     Dates: start: 20211104, end: 20211215
  2. OMEPRAZOLE [Concomitant]
     Active Substance: OMEPRAZOLE
  3. METOPROLOL [Concomitant]
     Active Substance: METOPROLOL
  4. ANASTROZOLE [Concomitant]
     Active Substance: ANASTROZOLE
  5. ZINC [Concomitant]
     Active Substance: ZINC
  6. AMLODIPINE [Concomitant]
     Active Substance: AMLODIPINE BESYLATE
  7. LISINOPRIL [Concomitant]
     Active Substance: LISINOPRIL
  8. DIETARY SUPPLEMENT\PROBIOTICS [Concomitant]
     Active Substance: DIETARY SUPPLEMENT\PROBIOTICS
  9. CURCUMIN [Concomitant]
     Active Substance: CURCUMIN
  10. BIOTIN-D [Concomitant]
  11. QUERCETIN DIHYDRATE [Concomitant]
     Active Substance: QUERCETIN DIHYDRATE
  12. MAGNESIUM [Concomitant]
     Active Substance: MAGNESIUM
  13. AVEMAR [Concomitant]
  14. BERBERINE [Concomitant]
     Active Substance: BERBERINE

REACTIONS (4)
  - Nausea [Recovered/Resolved]
  - Vomiting [Recovered/Resolved]
  - White blood cell count decreased [Recovering/Resolving]
  - Alopecia [Not Recovered/Not Resolved]

NARRATIVE: CASE EVENT DATE: 20210101
